FAERS Safety Report 11584267 (Version 1)
Quarter: 2015Q4

REPORT INFORMATION
  Report Type: Report from Study
  Country: CA (occurrence: CA)
  Receive Date: 20151001
  Receipt Date: 20151001
  Transmission Date: 20160304
  Serious: Yes (Other)
  Sender: FDA-Public Use
  Company Number: CA-ABBVIE-15K-028-1469727-00

PATIENT
  Sex: Female

DRUGS (1)
  1. HUMIRA [Suspect]
     Active Substance: ADALIMUMAB
     Indication: RHEUMATOID ARTHRITIS
     Route: 058
     Dates: start: 20141209, end: 201506

REACTIONS (6)
  - Constipation [Unknown]
  - Tremor [Unknown]
  - Dyspepsia [Unknown]
  - Drug ineffective [Not Recovered/Not Resolved]
  - Cartilage injury [Not Recovered/Not Resolved]
  - Rheumatoid arthritis [Unknown]
